FAERS Safety Report 11340383 (Version 1)
Quarter: 2015Q3

REPORT INFORMATION
  Report Type: Spontaneous
  Country: FR (occurrence: FR)
  Receive Date: 20150805
  Receipt Date: 20150805
  Transmission Date: 20151125
  Serious: Yes (Other)
  Sender: FDA-Public Use
  Company Number: FR-NOVOPROD-458432

PATIENT
  Sex: Female

DRUGS (1)
  1. KLIOGEST [Suspect]
     Active Substance: ESTROGENS
     Dosage: UNK
     Route: 065

REACTIONS (1)
  - Dysaesthesia [Recovered/Resolved]
